FAERS Safety Report 25283457 (Version 1)
Quarter: 2025Q2

REPORT INFORMATION
  Report Type: Spontaneous
  Country: US (occurrence: US)
  Receive Date: 20250508
  Receipt Date: 20250508
  Transmission Date: 20250716
  Serious: No
  Sender: MAYNE
  Company Number: US-MAYNE PHARMA-2025MYN000025

PATIENT

DRUGS (1)
  1. NEXTSTELLIS [Suspect]
     Active Substance: DROSPIRENONE\ESTETROL MONOHYDRATE
     Indication: Product used for unknown indication
     Dosage: 1 DF, QD, AT EXACTLY 7AM
     Route: 065
     Dates: start: 20241214

REACTIONS (2)
  - Menstruation delayed [Unknown]
  - Intermenstrual bleeding [Not Recovered/Not Resolved]

NARRATIVE: CASE EVENT DATE: 20250101
